FAERS Safety Report 8616539 (Version 4)
Quarter: 2014Q2

REPORT INFORMATION
  Report Type: Spontaneous
  Country: US (occurrence: US)
  Receive Date: 20120615
  Receipt Date: 20140422
  Transmission Date: 20141212
  Serious: Yes (Hospitalization)
  Sender: FDA-Public Use
  Company Number: US-ASTRAZENECA-2012SE35409

PATIENT
  Age: 134 Month
  Sex: Female
  Weight: 72.6 kg

DRUGS (11)
  1. NEXIUM [Suspect]
     Indication: GASTROOESOPHAGEAL REFLUX DISEASE
     Dosage: TWO TIMES A DAY
     Route: 048
     Dates: start: 2004
  2. NEXIUM [Suspect]
     Indication: GASTROOESOPHAGEAL REFLUX DISEASE
     Route: 048
     Dates: start: 20060823
  3. PRILOSEC [Suspect]
     Route: 048
  4. DEXAMETHA [Concomitant]
     Dates: start: 20040204
  5. HYDROCOD/APAP [Concomitant]
     Dates: start: 20040424
  6. PREVACID [Concomitant]
     Dates: start: 20060622
  7. PREDNISOLON [Concomitant]
     Dates: start: 20080314
  8. ZANTAC [Concomitant]
  9. PEPCID [Concomitant]
  10. PREDNISONE [Concomitant]
  11. ALBUTEROL [Concomitant]

REACTIONS (8)
  - Gastrointestinal disorder [Unknown]
  - Osteoporosis [Unknown]
  - Radius fracture [Unknown]
  - Wrist fracture [Unknown]
  - Foot fracture [Unknown]
  - Upper limb fracture [Unknown]
  - Fall [Unknown]
  - Pogosta disease [Unknown]
